FAERS Safety Report 9357866 (Version 1)
Quarter: 2013Q2

REPORT INFORMATION
  Report Type: Spontaneous
  Country: BR (occurrence: BR)
  Receive Date: 20130620
  Receipt Date: 20130620
  Transmission Date: 20140414
  Serious: Yes (Other)
  Sender: FDA-Public Use
  Company Number: BR-US-EMD SERONO, INC.-7100177

PATIENT
  Age: 56 Year
  Sex: Male

DRUGS (4)
  1. REBIF [Suspect]
     Indication: RELAPSING-REMITTING MULTIPLE SCLEROSIS
     Dates: start: 20110902, end: 20111102
  2. REBIF [Suspect]
     Dosage: HALF DOSE
     Dates: start: 20111109
  3. REBIF [Suspect]
     Dates: start: 20120622
  4. PARACETAMOL [Concomitant]
     Indication: PRODUCT USED FOR UNKNOWN INDICATION

REACTIONS (3)
  - Alanine aminotransferase increased [Recovered/Resolved]
  - Aspartate aminotransferase increased [Recovered/Resolved]
  - Blood triglycerides increased [Recovered/Resolved]
